FAERS Safety Report 16082962 (Version 1)
Quarter: 2019Q1

REPORT INFORMATION
  Report Type: Report from Study
  Country: US (occurrence: US)
  Receive Date: 20190318
  Receipt Date: 20190318
  Transmission Date: 20190418
  Serious: Yes (Other)
  Sender: FDA-Public Use
  Company Number: US-ROCHE-2277812

PATIENT

DRUGS (3)
  1. TACROLIMUS. [Suspect]
     Active Substance: TACROLIMUS
     Indication: PROPHYLAXIS AGAINST GRAFT VERSUS HOST DISEASE
     Route: 065
  2. MYCOPHENOLATE MOFETIL. [Suspect]
     Active Substance: MYCOPHENOLATE MOFETIL
     Indication: PROPHYLAXIS AGAINST GRAFT VERSUS HOST DISEASE
     Dosage: MYCOPHENOLATE MOFETIL WAS STOPPED ON DAY 35
     Route: 065
  3. CYCLOPHOSPHAMIDE. [Suspect]
     Active Substance: CYCLOPHOSPHAMIDE
     Indication: PROPHYLAXIS AGAINST GRAFT VERSUS HOST DISEASE
     Dosage: ON DAYS 3 AND 4
     Route: 065

REACTIONS (20)
  - Hepatic failure [Unknown]
  - Paralysis [Unknown]
  - Fatigue [Unknown]
  - Pulmonary toxicity [Unknown]
  - Skin toxicity [Unknown]
  - Haematotoxicity [Unknown]
  - Cardiotoxicity [Unknown]
  - Haemorrhage [Unknown]
  - Pancreatic toxicity [Unknown]
  - Nephropathy toxic [Unknown]
  - Toxicity to various agents [Unknown]
  - Deafness [Unknown]
  - Neurotoxicity [Unknown]
  - Ocular toxicity [Unknown]
  - Encephalopathy [Unknown]
  - Pyrexia [Unknown]
  - Intestinal obstruction [Unknown]
  - Anaphylactic reaction [Unknown]
  - Tumour lysis syndrome [Unknown]
  - Gastrointestinal toxicity [Unknown]
